FAERS Safety Report 5722570-3 (Version None)
Quarter: 2008Q2

REPORT INFORMATION
  Report Type: 
  Country: None (occurrence: None)
  Receive Date: 20080429
  Receipt Date: 20070723
  Transmission Date: 20081010
  Serious: No
  Sender: FDA-Public Use
  Company Number: CA-ASTRAZENECA-2007UW17829

PATIENT
  Age: 41 Year
  Sex: Female
  Weight: 111.6 kg

DRUGS (7)
  1. NEXIUM [Suspect]
     Indication: GASTROOESOPHAGEAL REFLUX DISEASE
     Route: 048
     Dates: start: 20070618
  2. ATENOLOL [Concomitant]
     Route: 048
  3. HYDROCHLOROTHIAZIDE [Concomitant]
     Route: 048
  4. ALBUTEROL [Concomitant]
  5. FLOVENT [Concomitant]
  6. OSCAL [Concomitant]
  7. VITAMIN D [Concomitant]

REACTIONS (2)
  - PRURITUS [None]
  - RHINORRHOEA [None]
